FAERS Safety Report 20124280 (Version 1)
Quarter: 2021Q4

REPORT INFORMATION
  Report Type: Spontaneous
  Country: FR (occurrence: FR)
  Receive Date: 20211129
  Receipt Date: 20211129
  Transmission Date: 20220303
  Serious: Yes (Hospitalization, Other)
  Sender: FDA-Public Use
  Company Number: None

PATIENT
  Age: 11 Year
  Sex: Female
  Weight: 44 kg

DRUGS (1)
  1. LAMICTAL [Suspect]
     Active Substance: LAMOTRIGINE
     Indication: Petit mal epilepsy
     Dosage: 100 MG, QD
     Route: 048
     Dates: start: 20210909

REACTIONS (2)
  - Toxic epidermal necrolysis [Recovering/Resolving]
  - Product prescribing error [Recovered/Resolved]

NARRATIVE: CASE EVENT DATE: 20210909
